FAERS Safety Report 4581892-2 (Version None)
Quarter: 2005Q1

REPORT INFORMATION
  Report Type: 
  Country: None (occurrence: None)
  Receive Date: 20050214
  Receipt Date: 20040331
  Transmission Date: 20050727
  Serious: No
  Sender: FDA-Public Use
  Company Number: US-GLAXOSMITHKLINE-A0505383A

PATIENT
  Age: 39 Year
  Sex: Female

DRUGS (3)
  1. LAMICTAL [Suspect]
     Indication: DEPRESSION
     Route: 048
     Dates: end: 20011226
  2. KLONOPIN [Concomitant]
  3. SEROQUEL [Concomitant]

REACTIONS (2)
  - RASH [None]
  - TREMOR [None]
